FAERS Safety Report 5072571-6 (Version None)
Quarter: 2006Q3

REPORT INFORMATION
  Report Type: 
  Country: None (occurrence: None)
  Receive Date: 20060801
  Receipt Date: 20060710
  Transmission Date: 20061208
  Serious: Yes (Hospitalization)
  Sender: FDA-Public Use
  Company Number: 163-21880-06070371

PATIENT
  Age: 84 Year
  Sex: Female
  Weight: 60.782 kg

DRUGS (6)
  1. REVLIMID [Suspect]
     Indication: MYELODYSPLASTIC SYNDROME
     Dosage: SEE IMAGE
     Route: 048
     Dates: start: 20060508, end: 20060512
  2. REVLIMID [Suspect]
     Indication: MYELODYSPLASTIC SYNDROME
     Dosage: SEE IMAGE
     Route: 048
     Dates: start: 20060711
  3. IRON [Concomitant]
  4. QUININE SULFATE [Concomitant]
  5. NORVASC [Concomitant]
  6. NOVO/FOSINOPRIL (FOSINOPRIL) [Concomitant]

REACTIONS (5)
  - ABDOMINAL PAIN [None]
  - ARRHYTHMIA [None]
  - DIZZINESS [None]
  - PERICARDIAL EFFUSION [None]
  - POST PROCEDURAL COMPLICATION [None]
